FAERS Safety Report 18848365 (Version 1)
Quarter: 2021Q1

REPORT INFORMATION
  Report Type: Spontaneous
  Country: US (occurrence: US)
  Receive Date: 20210204
  Receipt Date: 20210204
  Transmission Date: 20210419
  Serious: No
  Sender: FDA-Public Use
  Company Number: US-ASTRAZENECA-2021A004268

PATIENT
  Sex: Female

DRUGS (1)
  1. BYDUREON BCISE [Suspect]
     Active Substance: EXENATIDE
     Route: 058

REACTIONS (8)
  - Incorrect dose administered [Unknown]
  - Nausea [Recovered/Resolved]
  - Intentional device misuse [Unknown]
  - Wrong technique in device usage process [Not Recovered/Not Resolved]
  - Injection site mass [Unknown]
  - Decreased appetite [Recovered/Resolved]
  - Injection site erythema [Unknown]
  - Device leakage [Unknown]
